FAERS Safety Report 14526579 (Version 4)
Quarter: 2018Q2

REPORT INFORMATION
  Report Type: Spontaneous
  Country: FR (occurrence: FR)
  Receive Date: 20180213
  Receipt Date: 20180530
  Transmission Date: 20180711
  Serious: Yes (Other)
  Sender: FDA-Public Use
  Company Number: FR-MYLANLABS-2018M1009602

PATIENT
  Age: 5 Year
  Sex: Male

DRUGS (23)
  1. CYTARABINE. [Suspect]
     Active Substance: CYTARABINE
     Indication: ACUTE LYMPHOCYTIC LEUKAEMIA
     Dosage: 1 DF, QD
     Route: 037
     Dates: start: 20171201, end: 20171229
  2. CYTARABINE. [Suspect]
     Active Substance: CYTARABINE
     Dosage: 1 DF, QD
     Route: 042
     Dates: start: 20171201, end: 20180108
  3. CYTARABINE. [Suspect]
     Active Substance: CYTARABINE
     Dosage: 15 MG, UNK
     Route: 037
     Dates: start: 20171201, end: 20171229
  4. BACTRIM [Concomitant]
     Active Substance: SULFAMETHOXAZOLE\TRIMETHOPRIM
     Indication: INFECTION PROPHYLAXIS
     Dosage: UNK
  5. 6-MERCAPTOPURINE MONOHYDRATE [Suspect]
     Active Substance: MERCAPTOPURINE
     Dosage: 50 MG, QD, 50 MG, 1X/DAY:QD
     Route: 048
     Dates: start: 20171129, end: 20180109
  6. CYCLOPHOSPHAMIDE. [Suspect]
     Active Substance: CYCLOPHOSPHAMIDE
     Dosage: 780 MG, UNK
     Dates: start: 20171129, end: 20171227
  7. RIVOTRIL [Concomitant]
     Active Substance: CLONAZEPAM
     Indication: NEURALGIA
     Dosage: UNK
  8. CYCLOPHOSPHAMIDE. [Suspect]
     Active Substance: CYCLOPHOSPHAMIDE
     Dosage: 780 MG, QD, 780 MG, 1X/DAY:QD
     Route: 042
     Dates: start: 20171129, end: 20171227
  9. PEGASPARGASE [Suspect]
     Active Substance: PEGASPARGASE
     Indication: ACUTE LYMPHOCYTIC LEUKAEMIA
     Dosage: 1950 IU, QD, 1950 IU,1X/DAY:QD
     Route: 042
     Dates: start: 20171213, end: 20180110
  10. EFFORTIL [Concomitant]
     Active Substance: ETILEFRINE HYDROCHLORIDE
     Indication: PRIAPISM
     Dosage: UNK
  11. VINCRISTINE [Suspect]
     Active Substance: VINCRISTINE
     Indication: ACUTE LYMPHOCYTIC LEUKAEMIA
     Dosage: 1 DF, QD
     Route: 042
     Dates: start: 20171213
  12. VINCRISTINE [Suspect]
     Active Substance: VINCRISTINE
     Dosage: 1.15 MG, 1X/DAY:QD
     Route: 042
     Dates: start: 20171213
  13. CYCLOPHOSPHAMIDE. [Suspect]
     Active Substance: CYCLOPHOSPHAMIDE
     Indication: ACUTE LYMPHOCYTIC LEUKAEMIA
     Dosage: 780 MG, QD
     Route: 042
     Dates: start: 20171129, end: 20171227
  14. AMLOR [Concomitant]
     Active Substance: AMLODIPINE BESYLATE
     Indication: HYPERTENSION
     Dosage: UNK
  15. METHOTREXATE. [Suspect]
     Active Substance: METHOTREXATE
     Dosage: 12 MG, QD, 12 MG, 1X/DAY:QD
     Route: 037
     Dates: start: 20171201, end: 20171229
  16. 6-MERCAPTOPURINE MONOHYDRATE [Suspect]
     Active Substance: MERCAPTOPURINE
     Indication: ACUTE LYMPHOCYTIC LEUKAEMIA
     Dosage: 1 DF, QD
     Route: 048
     Dates: start: 20171129, end: 20180109
  17. CYTARABINE. [Suspect]
     Active Substance: CYTARABINE
     Dosage: 57.5 MG, QD, 57.5 MG, 1X/DAY:QD
     Route: 042
     Dates: start: 20171201, end: 20180108
  18. HYDROCORTISONE. [Suspect]
     Active Substance: HYDROCORTISONE
     Indication: ACUTE LYMPHOCYTIC LEUKAEMIA
     Dosage: 1 DF, QD
     Route: 037
     Dates: start: 20171201, end: 20171229
  19. EPINEPHRINE. [Concomitant]
     Active Substance: EPINEPHRINE
     Indication: PRIAPISM
     Dosage: UNK
  20. CYTARABINE. [Suspect]
     Active Substance: CYTARABINE
     Dosage: 30 MG, QD, 30 MG, 1X/DAY:QD
     Route: 037
     Dates: start: 20171201, end: 20171229
  21. HYDROCORTISONE. [Suspect]
     Active Substance: HYDROCORTISONE
     Dosage: 15 MG, QD, 15 MG, 1X/DAY:QD
     Route: 037
     Dates: start: 20171201, end: 20171229
  22. METHOTREXATE. [Suspect]
     Active Substance: METHOTREXATE
     Indication: ACUTE LYMPHOCYTIC LEUKAEMIA
     Dosage: 1 DF, QD
     Route: 037
     Dates: start: 20171201, end: 20171229
  23. CYTARABINE. [Suspect]
     Active Substance: CYTARABINE
     Dosage: 535 MG,
     Route: 042
     Dates: start: 20171201, end: 20171229

REACTIONS (1)
  - Hypertriglyceridaemia [Recovered/Resolved]

NARRATIVE: CASE EVENT DATE: 20180114
